FAERS Safety Report 21216666 (Version 2)
Quarter: 2022Q3

REPORT INFORMATION
  Report Type: Spontaneous
  Country: US (occurrence: US)
  Receive Date: 20220816
  Receipt Date: 20220927
  Transmission Date: 20221026
  Serious: Yes (Death, Other)
  Sender: FDA-Public Use
  Company Number: US-009507513-2207USA009189

PATIENT
  Age: 84 Year
  Sex: Male
  Weight: 86.1 kg

DRUGS (1)
  1. KEYTRUDA [Suspect]
     Active Substance: PEMBROLIZUMAB
     Indication: Malignant melanoma
     Dosage: UNK
     Dates: start: 2015

REACTIONS (5)
  - Cerebrovascular accident [Fatal]
  - Transient ischaemic attack [Unknown]
  - Dementia Alzheimer^s type [Unknown]
  - Melanosis [Unknown]
  - Arteriosclerosis [Unknown]

NARRATIVE: CASE EVENT DATE: 20180101
